FAERS Safety Report 7441075-5 (Version None)
Quarter: 2011Q2

REPORT INFORMATION
  Report Type: 
  Country: None (occurrence: None)
  Receive Date: 20110427
  Receipt Date: 20110418
  Transmission Date: 20111010
  Serious: Yes (Hospitalization, Other)
  Sender: FDA-Public Use
  Company Number: NL-GENENTECH-308006

PATIENT
  Age: 96 Year
  Sex: Female

DRUGS (5)
  1. RANIBIZUMAB [Suspect]
     Dosage: 0.05 ML, UNK
     Route: 031
     Dates: start: 20090526
  2. RANIBIZUMAB [Suspect]
     Dosage: 0.05 ML, UNK
     Route: 031
     Dates: start: 20091006
  3. ANTICOAGULANT [Concomitant]
     Indication: PRODUCT USED FOR UNKNOWN INDICATION
  4. RANIBIZUMAB [Suspect]
     Indication: MACULAR DEGENERATION
     Dosage: 0.05 ML, UNK
     Route: 031
  5. AVASTIN [Suspect]
     Indication: MACULAR DEGENERATION

REACTIONS (3)
  - CHOROIDAL HAEMORRHAGE [None]
  - IRIS DISORDER [None]
  - NAUSEA [None]
